FAERS Safety Report 21131964 (Version 1)
Quarter: 2022Q3

REPORT INFORMATION
  Report Type: Spontaneous
  Country: US (occurrence: None)
  Receive Date: 20220726
  Receipt Date: 20220726
  Transmission Date: 20221026
  Serious: Yes (Life-Threatening, Hospitalization)
  Sender: FDA-Public Use
  Company Number: None

PATIENT
  Age: 82 Year
  Sex: Female
  Weight: 76.05 kg

DRUGS (2)
  1. SACITUZUMAB [Suspect]
     Active Substance: SACITUZUMAB
     Indication: Breast cancer metastatic
     Dosage: OTHER FREQUENCY : FIRST CYCLE;?
     Route: 042
     Dates: start: 20220713
  2. HYDROCHLOROTHIAZIDE\LOSARTAN [Concomitant]
     Active Substance: HYDROCHLOROTHIAZIDE\LOSARTAN
     Dates: end: 20220721

REACTIONS (5)
  - Acute kidney injury [None]
  - Diarrhoea [None]
  - Dehydration [None]
  - Pancytopenia [None]
  - SARS-CoV-2 test positive [None]

NARRATIVE: CASE EVENT DATE: 20220721
